FAERS Safety Report 10252688 (Version 2)
Quarter: 2014Q2

REPORT INFORMATION
  Report Type: Spontaneous
  Country: JP (occurrence: JP)
  Receive Date: 20140623
  Receipt Date: 20140623
  Transmission Date: 20141212
  Serious: Yes (Hospitalization)
  Sender: FDA-Public Use
  Company Number: US-ASTRAZENECA-2014SE38980

PATIENT
  Age: 66 Year
  Sex: Female
  Weight: 55 kg

DRUGS (6)
  1. BLOPRESS [Suspect]
     Indication: HYPERTENSION
     Route: 048
     Dates: start: 20130416, end: 201405
  2. AMLODIN [Concomitant]
     Indication: HYPERTENSION
     Route: 048
     Dates: start: 20131122, end: 20131220
  3. AMLODIN [Concomitant]
     Indication: HYPERTENSION
     Route: 048
     Dates: start: 20131221
  4. CARNACULIN [Concomitant]
     Indication: DIZZINESS
     Route: 048
     Dates: start: 20130416, end: 20130705
  5. MERISLON [Concomitant]
     Indication: DIZZINESS
     Route: 048
     Dates: start: 20130416, end: 20130705
  6. SELBEX [Concomitant]
     Indication: DIZZINESS
     Route: 048
     Dates: start: 20130416, end: 20130705

REACTIONS (5)
  - Dysthymic disorder [Unknown]
  - Dyspnoea [Recovered/Resolved]
  - Hypoaesthesia [Recovered/Resolved]
  - Dysarthria [Recovered/Resolved]
  - Dizziness [Recovered/Resolved]
